FAERS Safety Report 5985188-3 (Version None)
Quarter: 2008Q4

REPORT INFORMATION
  Report Type: 
  Country: None (occurrence: None)
  Receive Date: 20081203
  Receipt Date: 20081119
  Transmission Date: 20090506
  Serious: Yes (Hospitalization)
  Sender: FDA-Public Use
  Company Number: 231224J08USA

PATIENT
  Age: 52 Year
  Sex: Male
  Weight: 104 kg

DRUGS (5)
  1. REBIF [Suspect]
     Indication: MULTIPLE SCLEROSIS
     Dosage: 44 MCG, 3 IN 1 WEEKS, SUBCUTANEOUS
     Route: 058
     Dates: start: 20060531
  2. PROVIGIL [Concomitant]
  3. GABAPENTIN [Concomitant]
  4. BENICAR [Concomitant]
  5. CRESTOR [Concomitant]

REACTIONS (5)
  - BONE NEOPLASM [None]
  - HYPOAESTHESIA [None]
  - INCISION SITE INFECTION [None]
  - INJECTION SITE HAEMATOMA [None]
  - INJECTION SITE PAIN [None]
